APPROVED DRUG PRODUCT: QVAR 80
Active Ingredient: BECLOMETHASONE DIPROPIONATE
Strength: 0.08MG/INH **Federal Register determination that product was not discontinued or withdrawn for safety or effectiveness reasons**
Dosage Form/Route: AEROSOL, METERED;INHALATION
Application: N020911 | Product #001
Applicant: TEVA BRANDED PHARMACEUTICAL PRODUCTS R AND D LLC
Approved: Sep 15, 2000 | RLD: Yes | RS: No | Type: DISCN

PATENTS:
Patent 10086156 | Expires: May 18, 2031
Patent 9463289 | Expires: May 18, 2031
Patent 10022509 | Expires: May 18, 2031
Patent 9808587 | Expires: May 18, 2031
Patent 10022510 | Expires: May 18, 2031